FAERS Safety Report 4457914-6 (Version None)
Quarter: 2004Q3

REPORT INFORMATION
  Report Type: 
  Country: None (occurrence: None)
  Receive Date: 20040917
  Receipt Date: 20040521
  Transmission Date: 20050211
  Serious: Yes (Hospitalization)
  Sender: FDA-Public Use
  Company Number: US-JNJFOC-20040505444

PATIENT
  Age: 39 Year
  Sex: Female
  Weight: 71 kg

DRUGS (7)
  1. TOPAMAX [Suspect]
     Indication: DEPRESSION
     Dosage: 200 MG, IN 1 DAY; 150 MG, IN 1 DAY
     Dates: start: 20040518
  2. BACLOFEN [Concomitant]
  3. ALLEGRA [Concomitant]
  4. DIFLUCAN [Concomitant]
  5. PREVACID [Concomitant]
  6. ATIVAN [Concomitant]
  7. LEVOTHROID [Concomitant]

REACTIONS (1)
  - HALLUCINATION [None]
